FAERS Safety Report 17872816 (Version 1)
Quarter: 2020Q2

REPORT INFORMATION
  Report Type: Spontaneous
  Country: CN (occurrence: CN)
  Receive Date: 20200608
  Receipt Date: 20200608
  Transmission Date: 20200714
  Serious: Yes (Other)
  Sender: FDA-Public Use
  Company Number: CN-PFIZER INC-2020218578

PATIENT
  Age: 26 Year
  Sex: Female
  Weight: 85 kg

DRUGS (4)
  1. SOLU-MEDROL [Suspect]
     Active Substance: METHYLPREDNISOLONE SODIUM SUCCINATE
     Indication: ANTIINFLAMMATORY THERAPY
     Dosage: 20 MG, 1X/DAY
     Route: 040
     Dates: start: 20200528, end: 20200528
  2. CERVUS AND CUCUMIS POLYPEPTIDE [Suspect]
     Active Substance: POLYPEPTIDES
     Indication: ARTHRITIS
     Dosage: 24 MG, 1X/DAY
     Route: 041
     Dates: start: 20200528, end: 20200528
  3. SODIUM CHLORIDE. [Concomitant]
     Active Substance: SODIUM CHLORIDE
     Indication: VEHICLE SOLUTION USE
     Dosage: 50 ML, 1X/DAY
     Route: 040
     Dates: start: 20200528, end: 20200528
  4. SODIUM CHLORIDE. [Concomitant]
     Active Substance: SODIUM CHLORIDE
     Indication: VEHICLE SOLUTION USE
     Dosage: 250 ML, 1X/DAY
     Route: 041
     Dates: start: 20200528, end: 20200528

REACTIONS (2)
  - Sensation of foreign body [Recovered/Resolved]
  - Tachypnoea [Recovered/Resolved]

NARRATIVE: CASE EVENT DATE: 20200528
